FAERS Safety Report 9768781 (Version 3)
Quarter: 2014Q1

REPORT INFORMATION
  Report Type: Spontaneous
  Country: JP (occurrence: JP)
  Receive Date: 20131218
  Receipt Date: 20140315
  Transmission Date: 20141002
  Serious: Yes (Hospitalization)
  Sender: FDA-Public Use
  Company Number: JP-ROCHE-1318032

PATIENT
  Age: 83 Year
  Sex: Female

DRUGS (10)
  1. BONVIVA [Suspect]
     Indication: OSTEOPOROSIS
     Dosage: DOSAGE IS UNCERTAIN.
     Route: 042
     Dates: start: 20131205
  2. SEROQUEL [Concomitant]
     Route: 048
  3. OPALMON [Concomitant]
     Route: 048
  4. DONEPEZIL HYDROCHLORIDE [Concomitant]
     Route: 048
  5. EVISTA [Concomitant]
     Route: 048
  6. BLOPRESS [Concomitant]
     Route: 048
  7. LYRICA [Concomitant]
     Route: 048
  8. YODEL-S [Concomitant]
     Indication: CONSTIPATION
     Dosage: AT THE OBSTIPATION
     Route: 048
  9. AMLODIPINE [Concomitant]
     Route: 048
  10. ELCITONIN [Concomitant]
     Route: 030

REACTIONS (1)
  - Cerebral ischaemia [Recovered/Resolved]
